FAERS Safety Report 5175629-6 (Version None)
Quarter: 2006Q4

REPORT INFORMATION
  Report Type: 
  Country: None (occurrence: None)
  Receive Date: 20061215
  Receipt Date: 20060627
  Transmission Date: 20070319
  Serious: No
  Sender: FDA-Public Use
  Company Number: US-AMGEN-KDL184519

PATIENT
  Age: 75 Year
  Sex: Female

DRUGS (5)
  1. ENBREL [Suspect]
     Indication: RHEUMATOID ARTHRITIS
     Dates: start: 19980101
  2. ESTROGENIC SUBSTANCE [Concomitant]
  3. THYROID TAB [Concomitant]
  4. PROCARDIA [Concomitant]
  5. ACETYLSALICYLIC ACID SRT [Concomitant]

REACTIONS (11)
  - ARTHRALGIA [None]
  - BURSITIS [None]
  - CARPAL TUNNEL SYNDROME [None]
  - CONDITION AGGRAVATED [None]
  - HERPES ZOSTER [None]
  - LYMPHOEDEMA [None]
  - POST HERPETIC NEURALGIA [None]
  - RASH [None]
  - RHEUMATOID ARTHRITIS [None]
  - TENOSYNOVITIS [None]
  - UTERINE DISORDER [None]
